FAERS Safety Report 15390805 (Version 1)
Quarter: 2018Q3

REPORT INFORMATION
  Report Type: Spontaneous
  Country: US (occurrence: US)
  Receive Date: 20180908
  Receipt Date: 20180908
  Transmission Date: 20181010
  Serious: No
  Sender: FDA-Public Use
  Company Number: None

PATIENT
  Age: 51 Year
  Sex: Female
  Weight: 59.4 kg

DRUGS (2)
  1. VITAMINS [Concomitant]
     Active Substance: VITAMINS
  2. BIMATOPROST. [Suspect]
     Active Substance: BIMATOPROST
     Indication: GROWTH OF EYELASHES
     Route: 061
     Dates: start: 20180801, end: 20180908

REACTIONS (5)
  - Erythema of eyelid [None]
  - Swollen tear duct [None]
  - Eyelid irritation [None]
  - Product substitution issue [None]
  - Eyelid oedema [None]

NARRATIVE: CASE EVENT DATE: 20180908
